FAERS Safety Report 9237045 (Version 1)
Quarter: 2013Q2

REPORT INFORMATION
  Report Type: Spontaneous
  Country: CA (occurrence: CA)
  Receive Date: 20130417
  Receipt Date: 20130417
  Transmission Date: 20140414
  Serious: Yes (Other)
  Sender: FDA-Public Use
  Company Number: CA-TEVA-398778USA

PATIENT
  Age: 70 Year
  Sex: Male

DRUGS (5)
  1. AMIODARONE [Suspect]
     Dosage: 200 MILLIGRAM DAILY;
     Route: 048
  2. APO-ALFUZOSIN [Concomitant]
  3. TARO-WARFARIN [Concomitant]
  4. MELOXICAM [Concomitant]
  5. AVODART [Concomitant]

REACTIONS (3)
  - Hypertension [Unknown]
  - Nasal congestion [Unknown]
  - Eye disorder [Unknown]
